FAERS Safety Report 20706348 (Version 2)
Quarter: 2022Q2

REPORT INFORMATION
  Report Type: Report from Study
  Country: TR (occurrence: TR)
  Receive Date: 20220413
  Receipt Date: 20220503
  Transmission Date: 20220721
  Serious: Yes (Death, Congenital Anomaly, Other)
  Sender: FDA-Public Use
  Company Number: TR-AMGEN-TURNI2022064215

PATIENT
  Age: 73 Year
  Sex: Male

DRUGS (2)
  1. AMG-510 [Suspect]
     Active Substance: AMG-510
     Indication: Non-small cell lung cancer metastatic
     Dosage: UNK
     Route: 065
     Dates: start: 202112
  2. AMG-510 [Suspect]
     Active Substance: AMG-510
     Indication: K-ras gene mutation

REACTIONS (1)
  - Non-small cell lung cancer [Fatal]

NARRATIVE: CASE EVENT DATE: 20220406
